FAERS Safety Report 7811992-2 (Version None)
Quarter: 2011Q4

REPORT INFORMATION
  Report Type: 
  Country: None (occurrence: None)
  Receive Date: 20111013
  Receipt Date: 20111002
  Transmission Date: 20120403
  Serious: Yes (Other)
  Sender: FDA-Public Use
  Company Number: US-RB-028540-11

PATIENT
  Age: 47 Year
  Sex: Female

DRUGS (2)
  1. MUCINEX DM [Suspect]
     Indication: PRODUCT USED FOR UNKNOWN INDICATION
     Dosage: UNKNOWN AMOUNT OF DRUG QUANTITY 4 HRS X 24 HRS
     Route: 048
  2. HYDROCHLORTHIAZIDE [Concomitant]
     Indication: HYPERTENSION

REACTIONS (3)
  - ACCIDENTAL OVERDOSE [None]
  - HYPERTENSION [None]
  - HEADACHE [None]
